FAERS Safety Report 7246949-6 (Version None)
Quarter: 2011Q1

REPORT INFORMATION
  Report Type: 
  Country: None (occurrence: None)
  Receive Date: 20110127
  Receipt Date: 20110120
  Transmission Date: 20110831
  Serious: Yes (Hospitalization, Other)
  Sender: FDA-Public Use
  Company Number: CA-PFIZER INC-2010172889

PATIENT
  Age: 62 Year
  Sex: Female

DRUGS (4)
  1. AVAPRO [Concomitant]
     Dosage: UNK
  2. PREMARIN [Suspect]
     Dosage: 0.1 MG, UNK
     Dates: start: 19990101, end: 20070101
  3. NORVASC [Concomitant]
     Dosage: UNK
  4. CALCIUM [Concomitant]
     Dosage: UNK

REACTIONS (4)
  - HAEMORRHAGE [None]
  - BREAST CANCER FEMALE [None]
  - INFARCTION [None]
  - CONTRALATERAL BREAST CANCER [None]
